FAERS Safety Report 22787305 (Version 3)
Quarter: 2024Q3

REPORT INFORMATION
  Report Type: Spontaneous
  Country: US (occurrence: US)
  Receive Date: 20230804
  Receipt Date: 20240711
  Transmission Date: 20241016
  Serious: Yes (Hospitalization, Other)
  Sender: PIERRE FABRE MEDICAMENT
  Company Number: US-PFM-2023-03180

PATIENT
  Sex: Female
  Weight: 6.299 kg

DRUGS (1)
  1. HEMANGEOL [Suspect]
     Active Substance: PROPRANOLOL HYDROCHLORIDE
     Indication: Haemangioma
     Dosage: 1.4 ML, TID (3/DAY)
     Route: 048

REACTIONS (3)
  - Brain abscess [Unknown]
  - Inappropriate schedule of product administration [Unknown]
  - Off label use [Unknown]
